FAERS Safety Report 9850508 (Version 1)
Quarter: 2013Q4

REPORT INFORMATION
  Report Type: Spontaneous
  Country: US (occurrence: None)
  Receive Date: 20131226
  Receipt Date: 20131226
  Transmission Date: 20140711
  Serious: Yes (Other)
  Sender: FDA-Public Use
  Company Number: PHEH2012US009371

PATIENT
  Age: 61 Year
  Sex: Female
  Weight: 30.7 kg

DRUGS (25)
  1. AFINITOR (RAD) TABLET, 10MG [Suspect]
     Indication: BREAST CANCER STAGE IV
     Route: 048
     Dates: start: 20120426
  2. EXEMESTANE (EXEMESTANE) TABLET [Concomitant]
  3. LUNESTA (ESZOPICLONE) [Concomitant]
  4. NEXIUM (ESOMEPRAZOLE MAGNESIUM) [Concomitant]
  5. VENLAFAXINE (VENAFAXINE) TABLET [Concomitant]
  6. VENLAFAXINE (VENLAFAXINE) TABLET [Concomitant]
  7. LEVOTHYROXINE (LEVOTHYROXINE) TABLET [Concomitant]
  8. LEVOTHYROXINE (LEVOTHYROXINE) TABLET [Concomitant]
  9. DIOVAN (VALSARTAN) TABLET [Concomitant]
  10. METOPROLOL (METOPROLOL) EXTENDED RELEASE TABLET [Concomitant]
  11. METOPROLOL (METOPROLOL) EXTENDED RELEASE TABLET [Concomitant]
  12. BABY ASPIRIN (ACETYLSALICYLIC ACID) CHEWABLE TABLET [Concomitant]
  13. BABY ASPIRIN (ACETYLSALICYLIC ACID) CHEWABLE TABLET [Concomitant]
  14. VITAMIN D (ERGOCALCIFEROL) [Concomitant]
  15. EFFEXOR (VENLAFAXINE HYDROCHLORIDE) TABLET [Concomitant]
  16. ARTIFICIAL TEARS (HYPROMELLOSE) SOLUTION [Concomitant]
  17. OXYCODONE (OXYCODONE) TABLET [Concomitant]
  18. ZOFRAN (ONDANSETRON HYDROCHLORIDE) TABLET [Concomitant]
  19. VITAMIN D3 (COLECALCIFEROL) CAPSULE [Concomitant]
  20. DEXLANSOPRAZOLE (DEXLANSOPRAZOLE) CAPSULE [Concomitant]
  21. IBUPROFEN (IBUPROFEN) TABLET [Concomitant]
  22. SUMATRIPTAN (SUMATRIPTAN) TABLET [Concomitant]
  23. LORAZEPAM (LORAZEPAM) TABLET [Concomitant]
  24. TUMS (CALCIUM CARBONATE) CHEWABLE TABLET [Concomitant]
  25. AROMASIN (EXEMESTANE) [Concomitant]

REACTIONS (4)
  - Thrombocytopenia [None]
  - Constipation [None]
  - Fatigue [None]
  - Condition aggravated [None]
